FAERS Safety Report 7212090-1 (Version None)
Quarter: 2010Q4

REPORT INFORMATION
  Report Type: 
  Country: None (occurrence: None)
  Receive Date: 20101227
  Receipt Date: 20101211
  Transmission Date: 20110411
  Serious: Yes (Hospitalization, Other)
  Sender: FDA-Public Use
  Company Number: ACO_21012_2010

PATIENT
  Age: 32 Year
  Sex: Female

DRUGS (8)
  1. AMPYRA [Suspect]
     Indication: PRODUCT USED FOR UNKNOWN INDICATION
     Dosage: 10 MG, Q 12 HRS
     Dates: start: 20101013, end: 20101216
  2. PROZAC [Concomitant]
  3. WELLBUTRIN /00700502/) (BUPROPION HYDROCHLORIDE) [Concomitant]
  4. BACLOFEN [Concomitant]
  5. MOBIC [Concomitant]
  6. DETROL [Concomitant]
  7. COPAXONE [Concomitant]
  8. TRAMADOL HCL [Concomitant]

REACTIONS (3)
  - GRAND MAL CONVULSION [None]
  - MEMORY IMPAIRMENT [None]
  - URINARY TRACT INFECTION [None]
